FAERS Safety Report 12546579 (Version 1)
Quarter: 2016Q3

REPORT INFORMATION
  Report Type: Report from Study
  Country: BR (occurrence: BR)
  Receive Date: 20160711
  Receipt Date: 20160711
  Transmission Date: 20161109
  Serious: Yes (Hospitalization, Other)
  Sender: FDA-Public Use
  Company Number: BR-ABBVIE-16K-020-1656087-00

PATIENT
  Age: 28 Year
  Sex: Female
  Weight: 53 kg

DRUGS (1)
  1. HUMIRA [Suspect]
     Active Substance: ADALIMUMAB
     Indication: CROHN^S DISEASE
     Dosage: LOADING DOSE, WEEK 0
     Route: 058
     Dates: start: 20160603, end: 20160603

REACTIONS (17)
  - Pain [Unknown]
  - Confusional state [Recovered/Resolved]
  - Stoma site extravasation [Recovered/Resolved]
  - Intestinal perforation [Recovering/Resolving]
  - Suture related complication [Not Recovered/Not Resolved]
  - Gastrointestinal infection [Unknown]
  - Gastrointestinal infection [Recovering/Resolving]
  - Unwanted awareness during anaesthesia [Recovered/Resolved]
  - Crohn^s disease [Unknown]
  - Memory impairment [Unknown]
  - Intestinal perforation [Recovered/Resolved]
  - Procedural pain [Recovered/Resolved]
  - Stoma site extravasation [Recovering/Resolving]
  - Pain [Recovered/Resolved]
  - Appendicitis [Recovering/Resolving]
  - Unwanted awareness during anaesthesia [Recovered/Resolved]
  - Procedural pain [Recovered/Resolved]

NARRATIVE: CASE EVENT DATE: 201606
